FAERS Safety Report 25257215 (Version 1)
Quarter: 2025Q2

REPORT INFORMATION
  Report Type: Spontaneous
  Country: US (occurrence: US)
  Receive Date: 20250430
  Receipt Date: 20250430
  Transmission Date: 20250716
  Serious: Yes (Hospitalization, Other)
  Sender: ELI LILLY AND COMPANY
  Company Number: US-ELI_LILLY_AND_COMPANY-US202504024281

PATIENT
  Age: 55 Year
  Sex: Female

DRUGS (8)
  1. TADALAFIL [Suspect]
     Active Substance: TADALAFIL
     Indication: Pulmonary arterial hypertension
     Route: 065
  2. SILDENAFIL [Suspect]
     Active Substance: SILDENAFIL
     Indication: Pulmonary arterial hypertension
     Route: 065
  3. REMODULIN [Suspect]
     Active Substance: TREPROSTINIL
     Indication: Pulmonary arterial hypertension
     Route: 058
     Dates: start: 2023
  4. REMODULIN [Suspect]
     Active Substance: TREPROSTINIL
     Route: 042
  5. TYVASO DPI [Suspect]
     Active Substance: TREPROSTINIL
     Indication: Pulmonary arterial hypertension
     Dosage: 80 UG, QID
     Route: 065
     Dates: start: 202408, end: 20250410
  6. OZEMPIC [Suspect]
     Active Substance: SEMAGLUTIDE
     Indication: Cardiac disorder
     Route: 065
  7. OPSUMIT [Suspect]
     Active Substance: MACITENTAN
     Indication: Product used for unknown indication
     Route: 065
  8. WINREVAIR [Suspect]
     Active Substance: SOTATERCEPT-CSRK
     Indication: Pulmonary hypertension
     Route: 065

REACTIONS (13)
  - Oesophageal spasm [Not Recovered/Not Resolved]
  - Myocardial infarction [Not Recovered/Not Resolved]
  - Dermatitis allergic [Not Recovered/Not Resolved]
  - Skin infection [Not Recovered/Not Resolved]
  - Choking [Not Recovered/Not Resolved]
  - Decreased immune responsiveness [Not Recovered/Not Resolved]
  - Pulmonary hypertension [Unknown]
  - Gait disturbance [Not Recovered/Not Resolved]
  - Pneumonia [Not Recovered/Not Resolved]
  - Cough [Recovered/Resolved]
  - Drug hypersensitivity [Unknown]
  - Fatigue [Not Recovered/Not Resolved]
  - Dyspnoea exertional [Not Recovered/Not Resolved]

NARRATIVE: CASE EVENT DATE: 20240401
